FAERS Safety Report 18514234 (Version 1)
Quarter: 2020Q4

REPORT INFORMATION
  Report Type: Spontaneous
  Country: FR (occurrence: FR)
  Receive Date: 20201117
  Receipt Date: 20201117
  Transmission Date: 20210114
  Serious: Yes (Other)
  Sender: FDA-Public Use
  Company Number: FR-CELLTRION INC.-2020FR031619

PATIENT

DRUGS (1)
  1. INFLIXIMAB (UNKNOWN) [Suspect]
     Active Substance: INFLIXIMAB
     Indication: CHRONIC GRANULOMATOUS DISEASE
     Dosage: 5 OR 10MG/KG/INFUSION, USUALLY AT 0, 2, AND 6 WEEKS
     Route: 042

REACTIONS (4)
  - Lymphadenitis [Unknown]
  - Systemic candida [Unknown]
  - Drug effective for unapproved indication [Unknown]
  - Off label use [Unknown]
